FAERS Safety Report 24622833 (Version 3)
Quarter: 2024Q4

REPORT INFORMATION
  Report Type: Spontaneous
  Country: SI (occurrence: SI)
  Receive Date: 20241115
  Receipt Date: 20241121
  Transmission Date: 20250115
  Serious: Yes (Hospitalization, Other)
  Sender: NOVARTIS
  Company Number: SI-002147023-NVSC2024SI218290

PATIENT
  Age: 71 Year
  Sex: Female

DRUGS (2)
  1. KISQALI [Suspect]
     Active Substance: RIBOCICLIB
     Indication: Breast cancer
     Dosage: 600 MG (3 TABLETS 21 DAYS, 7 DAYS OF BREAK)
     Route: 048
  2. LETROZOLE [Suspect]
     Active Substance: LETROZOLE
     Indication: Metastases to bone
     Dosage: 1 DOSAGE FORM, QD (1 TABLET PER DAY)
     Route: 065

REACTIONS (4)
  - Coronary artery disease [Recovering/Resolving]
  - Chest pain [Recovering/Resolving]
  - Neutropenia [Recovering/Resolving]
  - Joint stiffness [Recovering/Resolving]
